FAERS Safety Report 6656306-9 (Version None)
Quarter: 2010Q1

REPORT INFORMATION
  Report Type: 
  Country: None (occurrence: None)
  Receive Date: 20100324
  Receipt Date: 20100317
  Transmission Date: 20100710
  Serious: No
  Sender: FDA-Public Use
  Company Number: JP-GUERET-20100008

PATIENT
  Age: 2 Year
  Sex: Female

DRUGS (1)
  1. HEXABRIX [Suspect]

REACTIONS (4)
  - FACE OEDEMA [None]
  - HYPOXIA [None]
  - RASH [None]
  - USE OF ACCESSORY RESPIRATORY MUSCLES [None]
